FAERS Safety Report 8531118-X (Version None)
Quarter: 2012Q3

REPORT INFORMATION
  Report Type: 
  Country: None (occurrence: None)
  Receive Date: 20120723
  Receipt Date: 20120717
  Transmission Date: 20120928
  Serious: Yes (Life-Threatening, Hospitalization, Other)
  Sender: FDA-Public Use
  Company Number: US-ASTRAZENECA-2011SE52503

PATIENT
  Age: 86 Year
  Sex: Male

DRUGS (4)
  1. ANTIDEPRESSANT [Concomitant]
  2. CRESTOR [Suspect]
     Route: 048
  3. TRAMADOL HYDROCHLORIDE [Concomitant]
  4. HYDROCODONE [Concomitant]

REACTIONS (36)
  - RENAL FAILURE [None]
  - EJECTION FRACTION DECREASED [None]
  - ATRIAL FIBRILLATION [None]
  - DYSLIPIDAEMIA [None]
  - VERTIGO [None]
  - FATIGUE [None]
  - NEPHROLITHIASIS [None]
  - DIARRHOEA [None]
  - DIZZINESS [None]
  - DRUG DOSE OMISSION [None]
  - CARDIAC DISORDER [None]
  - GLAUCOMA [None]
  - SPINAL OSTEOARTHRITIS [None]
  - INSOMNIA [None]
  - SPONDYLITIS [None]
  - VENTRICULAR FIBRILLATION [None]
  - HOT FLUSH [None]
  - NEOPLASM MALIGNANT [None]
  - COLON CANCER [None]
  - BLADDER CANCER [None]
  - RENAL CANCER [None]
  - GASTROOESOPHAGEAL REFLUX DISEASE [None]
  - BENIGN PROSTATIC HYPERPLASIA [None]
  - DIVERTICULUM INTESTINAL [None]
  - BACK PAIN [None]
  - HYPERHIDROSIS [None]
  - HEADACHE [None]
  - CORONARY ARTERY DISEASE [None]
  - RENAL FAILURE CHRONIC [None]
  - GOUT [None]
  - MEDICAL DEVICE PAIN [None]
  - WEIGHT DECREASED [None]
  - DEPRESSION [None]
  - VENTRICULAR TACHYCARDIA [None]
  - CHOLELITHIASIS [None]
  - ARTHRITIS [None]
